FAERS Safety Report 14000239 (Version 1)
Quarter: 2017Q3

REPORT INFORMATION
  Report Type: Spontaneous
  Country: IL (occurrence: IL)
  Receive Date: 20170922
  Receipt Date: 20170922
  Transmission Date: 20171128
  Serious: Yes (Other)
  Sender: FDA-Public Use
  Company Number: IL-SA-2017SA171359

PATIENT
  Sex: Female

DRUGS (2)
  1. CEREZYME [Suspect]
     Active Substance: IMIGLUCERASE
     Indication: GAUCHER^S DISEASE
     Route: 064
     Dates: start: 20090224
  2. VPRIV [Suspect]
     Active Substance: VELAGLUCERASE ALFA
     Indication: GAUCHER^S DISEASE
     Dosage: DOSE:15 UNIT(S)/KILOGRAM BODYWEIGHT
     Route: 065

REACTIONS (2)
  - Maternal exposure before pregnancy [Unknown]
  - Foetal growth abnormality [Recovered/Resolved]
